FAERS Safety Report 10393587 (Version 1)
Quarter: 2014Q3

REPORT INFORMATION
  Report Type: Report from Study
  Country: BR (occurrence: BR)
  Receive Date: 20140819
  Receipt Date: 20140819
  Transmission Date: 20150326
  Serious: Yes (Hospitalization)
  Sender: FDA-Public Use
  Company Number: BR-BRISTOL-MYERS SQUIBB COMPANY-21310610

PATIENT
  Age: 65 Year
  Sex: Male

DRUGS (2)
  1. XELODA [Suspect]
     Active Substance: CAPECITABINE
     Indication: NEOPLASM MALIGNANT
  2. ERBITUX [Suspect]
     Active Substance: CETUXIMAB
     Indication: COLORECTAL CANCER METASTATIC

REACTIONS (11)
  - Paronychia [Unknown]
  - Furuncle [Unknown]
  - Dry skin [Unknown]
  - Skin haemorrhage [Unknown]
  - Skin wound [Unknown]
  - Palmar-plantar erythrodysaesthesia syndrome [Unknown]
  - Acne [Unknown]
  - Syncope [Unknown]
  - Skin atrophy [Unknown]
  - Stoma site haemorrhage [Recovered/Resolved]
  - Skin wrinkling [Unknown]

NARRATIVE: CASE EVENT DATE: 201407
